FAERS Safety Report 13485639 (Version 5)
Quarter: 2017Q2

REPORT INFORMATION
  Report Type: Report from Study
  Country: JP (occurrence: JP)
  Receive Date: 20170426
  Receipt Date: 20170626
  Transmission Date: 20170830
  Serious: Yes (Death, Other)
  Sender: FDA-Public Use
  Company Number: JP-BIOGEN-2017BI00388086

PATIENT
  Age: 52 Year
  Sex: Female
  Weight: 43 kg

DRUGS (1)
  1. TYSABRI [Suspect]
     Active Substance: NATALIZUMAB
     Indication: MULTIPLE SCLEROSIS
     Route: 041
     Dates: start: 20151216, end: 20170322

REACTIONS (2)
  - Encephalitis Japanese B [Fatal]
  - Encephalitis [Fatal]

NARRATIVE: CASE EVENT DATE: 20170408
